FAERS Safety Report 7274150-9 (Version None)
Quarter: 2011Q1

REPORT INFORMATION
  Report Type: 
  Country: None (occurrence: None)
  Receive Date: 20110204
  Receipt Date: 20110126
  Transmission Date: 20110831
  Serious: No
  Sender: FDA-Public Use
  Company Number: US-BIOGENIDEC-2011BI003148

PATIENT
  Age: 55 Year
  Sex: Female

DRUGS (2)
  1. TRAMADOL HCL [Concomitant]
     Indication: ARTHRALGIA
  2. TYSABRI [Suspect]
     Indication: MULTIPLE SCLEROSIS
     Route: 042
     Dates: start: 20101101

REACTIONS (6)
  - INSOMNIA [None]
  - HYPERTENSION [None]
  - PAIN IN EXTREMITY [None]
  - HYPOAESTHESIA [None]
  - SKIN DISCOLOURATION [None]
  - ARTHRALGIA [None]
